FAERS Safety Report 9958416 (Version 1)
Quarter: 2014Q1

REPORT INFORMATION
  Report Type: Spontaneous
  Country: DE (occurrence: DE)
  Receive Date: 20140305
  Receipt Date: 20140305
  Transmission Date: 20141002
  Serious: Yes (Hospitalization, Other)
  Sender: FDA-Public Use
  Company Number: DE-JNJFOC-20140217734

PATIENT
  Age: 18 Year
  Sex: Male

DRUGS (2)
  1. IBUPROFEN [Suspect]
     Indication: BACK PAIN
     Dosage: 2800 MG, DAILY
     Route: 048
     Dates: start: 20140125, end: 20140125
  2. PARACETAMOL [Concomitant]
     Indication: BACK PAIN
     Route: 048

REACTIONS (2)
  - Pulmonary haemorrhage [Unknown]
  - Haemoptysis [Unknown]
